FAERS Safety Report 6880919-2 (Version None)
Quarter: 2010Q3

REPORT INFORMATION
  Report Type: 
  Country: None (occurrence: None)
  Receive Date: 20100728
  Receipt Date: 20100722
  Transmission Date: 20110219
  Serious: Yes (Other)
  Sender: FDA-Public Use
  Company Number: IT-BRISTOL-MYERS SQUIBB COMPANY-15204118

PATIENT
  Age: 81 Year
  Sex: Female

DRUGS (6)
  1. COUMADIN [Suspect]
     Indication: ATRIAL FIBRILLATION
     Route: 048
     Dates: start: 20100301, end: 20100531
  2. DILTIAZEM [Concomitant]
     Route: 048
  3. KEPPRA [Concomitant]
     Route: 048
  4. PROVISACOR [Concomitant]
     Route: 048
  5. MEPRAL [Concomitant]
     Route: 048
  6. TEGRETOL [Concomitant]
     Route: 048

REACTIONS (3)
  - ARTERIAL THROMBOSIS LIMB [None]
  - INTERNATIONAL NORMALISED RATIO DECREASED [None]
  - OEDEMA PERIPHERAL [None]
